FAERS Safety Report 4774469-7 (Version None)
Quarter: 2005Q3

REPORT INFORMATION
  Report Type: 
  Country: None (occurrence: None)
  Receive Date: 20050914
  Receipt Date: 20041110
  Transmission Date: 20060218
  Serious: Yes (Other)
  Sender: FDA-Public Use
  Company Number: 163-20785-04110244

PATIENT
  Age: 86 Year
  Sex: Male

DRUGS (3)
  1. THALOMID [Suspect]
     Indication: PROSTATE CANCER
     Dosage: DAILY, ORAL
     Route: 048
     Dates: start: 20040715, end: 20040101
  2. THALOMID [Suspect]
     Indication: PROSTATE CANCER
     Dosage: DAILY, ORAL
     Route: 048
     Dates: start: 20040101
  3. CHEMOTHERAPY [Concomitant]

REACTIONS (1)
  - THROMBOSIS [None]
